FAERS Safety Report 5428557-2 (Version None)
Quarter: 2007Q3

REPORT INFORMATION
  Report Type: 
  Country: None (occurrence: None)
  Receive Date: 20070731
  Receipt Date: 20070427
  Transmission Date: 20080115
  Serious: No
  Sender: FDA-Public Use
  Company Number: US200704006524

PATIENT
  Age: 65 Year
  Sex: Female

DRUGS (4)
  1. BYETTA [Suspect]
     Indication: TYPE 2 DIABETES MELLITUS
     Dosage: 5 UG, 2/D, SUBCUTANEOUS
     Route: 058
     Dates: start: 20070226
  2. ACTOS [Concomitant]
  3. AMARYL [Concomitant]
  4. CORTISONE ACETATE [Concomitant]

REACTIONS (1)
  - BLOOD GLUCOSE INCREASED [None]
